FAERS Safety Report 6445003-0 (Version None)
Quarter: 2009Q4

REPORT INFORMATION
  Report Type: 
  Country: None (occurrence: None)
  Receive Date: 20091116
  Receipt Date: 20091116
  Transmission Date: 20100525
  Serious: Yes (Life-Threatening)
  Sender: FDA-Public Use
  Company Number: None

PATIENT
  Sex: Male

DRUGS (5)
  1. ADVAIR HFA [Suspect]
     Indication: ASTHMA
     Dosage: 1 INHALATION 2 X PER DAY, YEARS
     Dates: start: 20090301
  2. NORCO [Concomitant]
  3. THEOTHYLLINE [Concomitant]
  4. NEURONTIN [Concomitant]
  5. COMBIVENT [Concomitant]

REACTIONS (2)
  - DEVICE FAILURE [None]
  - FALL [None]
